FAERS Safety Report 9002811 (Version 1)
Quarter: 2013Q1

REPORT INFORMATION
  Report Type: Spontaneous
  Country: US (occurrence: US)
  Receive Date: 20130107
  Receipt Date: 20130107
  Transmission Date: 20140127
  Serious: Yes (Hospitalization, Other)
  Sender: FDA-Public Use
  Company Number: US-009507513-1301USA001157

PATIENT
  Age: 7 Year
  Sex: Male

DRUGS (2)
  1. SINGULAIR [Suspect]
  2. SEREVENT [Suspect]
     Dosage: UNK, UNK INHALATION

REACTIONS (8)
  - Amnesia [Unknown]
  - Metabolic acidosis [Unknown]
  - Inappropriate antidiuretic hormone secretion [Unknown]
  - Hyponatraemia [Unknown]
  - Gait disturbance [Unknown]
  - Disturbance in attention [Unknown]
  - Depressed level of consciousness [Unknown]
  - Balance disorder [Unknown]
